FAERS Safety Report 6302672-3 (Version None)
Quarter: 2009Q3

REPORT INFORMATION
  Report Type: 
  Country: None (occurrence: None)
  Receive Date: 20090810
  Receipt Date: 20090723
  Transmission Date: 20100115
  Serious: Yes (Hospitalization)
  Sender: FDA-Public Use
  Company Number: FR-PFIZER INC-2009249992

PATIENT
  Age: 74 Year

DRUGS (7)
  1. MIGLITOL [Suspect]
     Indication: TYPE 2 DIABETES MELLITUS
     Dosage: 100 MG, 3X/DAY
     Route: 048
     Dates: start: 20070101
  2. DAONIL [Suspect]
     Indication: TYPE 2 DIABETES MELLITUS
     Dosage: 5 MG, 3X/DAY
     Route: 048
     Dates: start: 20070101, end: 20090329
  3. SINTROM [Concomitant]
     Route: 048
  4. ALDALIX [Concomitant]
     Dosage: 50 MG, UNK
     Route: 048
  5. AVODART [Concomitant]
     Dosage: 0.5 MG, UNK
     Route: 048
  6. BISOPROLOL [Concomitant]
     Dosage: 10 MG, UNK
     Route: 048
  7. LEXOMIL [Concomitant]
     Dosage: 6 MG, UNK
     Route: 048

REACTIONS (3)
  - DEPRESSED LEVEL OF CONSCIOUSNESS [None]
  - DRUG INTERACTION [None]
  - HYPOGLYCAEMIA [None]
